FAERS Safety Report 6253388-3 (Version None)
Quarter: 2009Q3

REPORT INFORMATION
  Report Type: 
  Country: None (occurrence: None)
  Receive Date: 20090701
  Receipt Date: 20090624
  Transmission Date: 20100115
  Serious: Yes (Hospitalization)
  Sender: FDA-Public Use
  Company Number: FR-ABBOTT-09P-056-0581753-00

PATIENT
  Sex: Male
  Weight: 6 kg

DRUGS (2)
  1. DEPAKENE [Suspect]
     Indication: POST-TRAUMATIC EPILEPSY
     Dosage: 28.82MG/100MG
     Route: 048
     Dates: start: 20090515, end: 20090521
  2. DEPAKENE [Suspect]
     Dates: start: 20090521

REACTIONS (3)
  - ANTICONVULSANT DRUG LEVEL BELOW THERAPEUTIC [None]
  - CONVULSION [None]
  - DRUG ADMINISTRATION ERROR [None]
